FAERS Safety Report 5499447-4 (Version None)
Quarter: 2007Q4

REPORT INFORMATION
  Report Type: 
  Country: None (occurrence: None)
  Receive Date: 20071026
  Receipt Date: 20071023
  Transmission Date: 20080405
  Serious: Yes (Hospitalization)
  Sender: FDA-Public Use
  Company Number: DE-BRACCO-BRO-011914

PATIENT
  Sex: Female

DRUGS (5)
  1. MULTIHANCE [Suspect]
     Route: 042
     Dates: start: 20070717, end: 20070717
  2. MULTIHANCE [Suspect]
     Route: 042
     Dates: start: 20070717, end: 20070717
  3. CONCOR                             /00802603/ [Concomitant]
     Route: 048
  4. ESIDRIX [Concomitant]
     Route: 048
  5. MARCUMAR [Concomitant]
     Route: 048

REACTIONS (3)
  - ANAPHYLACTIC SHOCK [None]
  - ASPIRATION [None]
  - GRAND MAL CONVULSION [None]
